FAERS Safety Report 24068191 (Version 4)
Quarter: 2024Q4

REPORT INFORMATION
  Report Type: Spontaneous
  Country: FR (occurrence: FR)
  Receive Date: 20240710
  Receipt Date: 20241028
  Transmission Date: 20250114
  Serious: Yes (Hospitalization)
  Sender: GRIFOLS
  Company Number: FR-IGSA-BIG0029625

PATIENT
  Age: 75 Year
  Sex: Male
  Weight: 96.5 kg

DRUGS (20)
  1. GAMUNEX [Suspect]
     Active Substance: HUMAN IMMUNOGLOBULIN G
     Indication: Transplant rejection
     Dosage: 80 GRAM
     Dates: start: 20240605, end: 20240605
  2. GAMUNEX [Suspect]
     Active Substance: HUMAN IMMUNOGLOBULIN G
     Indication: Product use in unapproved indication
     Dosage: 80 GRAM
     Dates: start: 20240606, end: 20240606
  3. PANTOPRAZOLE [Concomitant]
     Active Substance: PANTOPRAZOLE
  4. NOVORAPID [Concomitant]
     Active Substance: INSULIN ASPART
  5. NOVORAPID [Concomitant]
     Active Substance: INSULIN ASPART
  6. POTASSIUM CHLORIDE [Concomitant]
     Active Substance: POTASSIUM CHLORIDE
  7. PREDNISONE [Suspect]
     Active Substance: PREDNISONE
     Indication: Prophylaxis against transplant rejection
     Dosage: 7.5 MILLIGRAM, QD
     Dates: start: 20220220
  8. OZEMPIC [Concomitant]
     Active Substance: SEMAGLUTIDE
  9. TACROLIMUS [Suspect]
     Active Substance: TACROLIMUS
     Indication: Prophylaxis against transplant rejection
     Dosage: 7 MILLIGRAM, QD
     Dates: start: 20220220
  10. ATOVAQUONE [Concomitant]
     Active Substance: ATOVAQUONE
  11. VITAMIN D3 [Concomitant]
     Active Substance: CHOLECALCIFEROL
  12. KARDEGIC [Concomitant]
     Active Substance: ASPIRIN DL-LYSINE
  13. AMILORIDE [Concomitant]
     Active Substance: AMILORIDE
  14. SPIRONOLACTONE [Concomitant]
     Active Substance: SPIRONOLACTONE
  15. ATORVASTATIN [Concomitant]
     Active Substance: ATORVASTATIN
  16. AMLODIPINE BESYLATE [Concomitant]
     Active Substance: AMLODIPINE BESYLATE
  17. INSULIN GLARGINE [Concomitant]
     Active Substance: INSULIN GLARGINE
  18. SILODOSIN [Concomitant]
     Active Substance: SILODOSIN
  19. SILODOSIN [Concomitant]
     Active Substance: SILODOSIN
  20. BISOPROLOL FUMARATE [Concomitant]
     Active Substance: BISOPROLOL FUMARATE

REACTIONS (1)
  - Acute myocardial infarction [Recovering/Resolving]

NARRATIVE: CASE EVENT DATE: 20240614
